FAERS Safety Report 9654713 (Version 2)
Quarter: 2013Q4

REPORT INFORMATION
  Report Type: Spontaneous
  Country: IT (occurrence: IT)
  Receive Date: 20131029
  Receipt Date: 20131029
  Transmission Date: 20140711
  Serious: Yes (Death, Hospitalization, Other)
  Sender: FDA-Public Use
  Company Number: IT-BRISTOL-MYERS SQUIBB COMPANY-19234400

PATIENT
  Age: 82 Year
  Sex: Male

DRUGS (12)
  1. COUMADIN TABS 5 MG [Suspect]
     Indication: ATRIAL FIBRILLATION
     Route: 048
     Dates: start: 20130101, end: 20130606
  2. CIPROXIN [Interacting]
     Dosage: 500 MG TABS
     Route: 048
     Dates: start: 20130601, end: 20130606
  3. LEVETIRACETAM [Concomitant]
     Indication: EPILEPSY
     Dosage: TABS
     Route: 048
     Dates: start: 20130528, end: 20130606
  4. MIRTAZAPINE [Concomitant]
     Dosage: TABS
     Route: 048
     Dates: start: 20130606
  5. RATACAND [Concomitant]
     Indication: HYPERTENSION
     Dosage: 16 MG TABS
     Route: 048
     Dates: start: 20130606
  6. LASIX [Concomitant]
     Indication: HYPERTENSION
     Dosage: 25 MG TABS
     Route: 048
     Dates: end: 20130606
  7. PRADIF [Concomitant]
     Indication: BENIGN PROSTATIC HYPERPLASIA
     Dosage: 0.4 MG CAPS
     Route: 048
     Dates: end: 20130606
  8. OMEPRAZEN [Concomitant]
     Dosage: CAPS
     Route: 048
     Dates: end: 20130606
  9. NEBIVOLOL [Concomitant]
     Dosage: ORAL DROPS
     Route: 048
     Dates: end: 20130606
  10. BLOPRESS [Concomitant]
     Indication: HYPERTENSION
     Route: 048
     Dates: end: 20130606
  11. LANOXIN [Concomitant]
     Route: 048
     Dates: end: 20130606
  12. POTASSIUM CHLORIDE [Concomitant]
     Route: 048
     Dates: end: 20130606

REACTIONS (3)
  - Left ventricular failure [Fatal]
  - International normalised ratio increased [Recovering/Resolving]
  - Drug interaction [Unknown]
